FAERS Safety Report 9661583 (Version 2)
Quarter: 2013Q4

REPORT INFORMATION
  Report Type: Spontaneous
  Country: US (occurrence: US)
  Receive Date: 20131031
  Receipt Date: 20131031
  Transmission Date: 20140711
  Serious: No
  Sender: FDA-Public Use
  Company Number: US-PURDUE-USA-2010-0055585

PATIENT
  Sex: Female

DRUGS (3)
  1. OXYCONTIN (NDA 22-272) [Suspect]
     Indication: PAIN
     Dosage: 40 MG, BID
     Dates: start: 20101012
  2. OXYCONTIN (NDA 22-272) [Suspect]
     Dosage: 20 MG, UNK
  3. OXYCONTIN TABLETS [Concomitant]
     Indication: PAIN
     Dosage: 20 MG, BID

REACTIONS (4)
  - Drug withdrawal syndrome [Unknown]
  - Burning sensation [Unknown]
  - Drug effect decreased [Unknown]
  - Product quality issue [Unknown]
